FAERS Safety Report 4954579-1 (Version None)
Quarter: 2006Q1

REPORT INFORMATION
  Report Type: 
  Country: None (occurrence: None)
  Receive Date: 20060322
  Receipt Date: 20060316
  Transmission Date: 20060701
  Serious: Yes (Hospitalization)
  Sender: FDA-Public Use
  Company Number: STA-AE-06-020

PATIENT
  Age: 34 Year
  Sex: Male

DRUGS (4)
  1. ACYCLOVIR [Suspect]
     Dosage: 800MG 5 TIMES/DAY
  2. WYSLONE [Suspect]
     Dosage: 100MG/DAY
  3. DEXAMETHASONE [Suspect]
     Dosage: 10 TIMES/DAY
  4. ATROPINE [Suspect]
     Dosage: 3 TIMES/DAY

REACTIONS (12)
  - BLINDNESS [None]
  - CHORIORETINAL DISORDER [None]
  - CONJUNCTIVAL HYPERAEMIA [None]
  - CORNEAL ENDOTHELIITIS [None]
  - CORNEAL OEDEMA [None]
  - CYTOMEGALOVIRUS ANTIBODY POSITIVE [None]
  - DESCEMET'S MEMBRANE DISORDER [None]
  - ENDOPHTHALMITIS [None]
  - OPHTHALMOLOGICAL EXAMINATION ABNORMAL [None]
  - VARICELLA ZOSTER VIRUS SEROLOGY POSITIVE [None]
  - VITREOUS DETACHMENT [None]
  - VITRITIS [None]
